FAERS Safety Report 15741749 (Version 4)
Quarter: 2019Q1

REPORT INFORMATION
  Report Type: Spontaneous
  Country: US (occurrence: US)
  Receive Date: 20181219
  Receipt Date: 20190311
  Transmission Date: 20190417
  Serious: Yes (Other)
  Sender: FDA-Public Use
  Company Number: US-ACTELION-A-US2018-183445

PATIENT
  Age: 60 Year
  Sex: Male

DRUGS (4)
  1. SPIRONOLACTONE. [Concomitant]
     Active Substance: SPIRONOLACTONE
     Dosage: 50 MG, QD
     Dates: start: 2016
  2. SILDENAFIL ACTAVIS [Concomitant]
     Active Substance: SILDENAFIL
     Dosage: 40 MG, QAM
     Dates: start: 2016
  3. FUROSEMIDE. [Concomitant]
     Active Substance: FUROSEMIDE
     Dosage: 40 MG, QD
     Dates: start: 2016
  4. UPTRAVI [Suspect]
     Active Substance: SELEXIPAG
     Indication: ARTERIAL OCCLUSIVE DISEASE
     Dosage: 1600 MCG, BID
     Route: 048
     Dates: start: 201804

REACTIONS (12)
  - Erythema [Not Recovered/Not Resolved]
  - Throat irritation [Recovered/Resolved]
  - Haematuria [Recovered/Resolved]
  - Nasopharyngitis [Unknown]
  - Pulmonary oedema [Recovering/Resolving]
  - Fall [Recovered/Resolved]
  - Kidney rupture [Recovered/Resolved]
  - Aphonia [Recovered/Resolved]
  - Malaise [Unknown]
  - Decreased appetite [Not Recovered/Not Resolved]
  - Productive cough [Recovered/Resolved]
  - Multiple allergies [Recovered/Resolved]

NARRATIVE: CASE EVENT DATE: 201804
